FAERS Safety Report 5512021-6 (Version None)
Quarter: 2007Q4

REPORT INFORMATION
  Report Type: 
  Country: None (occurrence: None)
  Receive Date: 20071109
  Receipt Date: 20071030
  Transmission Date: 20080405
  Serious: Yes (Other)
  Sender: FDA-Public Use
  Company Number: GB-PFIZER INC-2007093891

PATIENT
  Age: 48 Year
  Sex: Male

DRUGS (3)
  1. CHAMPIX [Suspect]
     Indication: SMOKING CESSATION THERAPY
     Dosage: FREQ:1 DOSE FORM
     Route: 048
     Dates: start: 20070622, end: 20070904
  2. CO-CODAMOL [Concomitant]
     Indication: ARTHRALGIA
     Route: 048
  3. DICLOFENAC SODIUM [Concomitant]
     Indication: ARTHRALGIA
     Route: 048
     Dates: start: 20070828

REACTIONS (4)
  - ARTHRALGIA [None]
  - MUSCULOSKELETAL STIFFNESS [None]
  - NECK PAIN [None]
  - PAIN IN EXTREMITY [None]
